FAERS Safety Report 13016933 (Version 1)
Quarter: 2016Q4

REPORT INFORMATION
  Report Type: Spontaneous
  Country: US (occurrence: US)
  Receive Date: 20161209
  Receipt Date: 20161209
  Transmission Date: 20170207
  Serious: Yes (Other)
  Sender: FDA-Public Use
  Company Number: None

PATIENT
  Age: 73 Year
  Sex: Male
  Weight: 65.25 kg

DRUGS (20)
  1. METOPROLOL TART [Concomitant]
     Active Substance: METOPROLOL TARTRATE
  2. VITAMIN D3 [Concomitant]
     Active Substance: CHOLECALCIFEROL
  3. AMLODIPINE [Concomitant]
     Active Substance: AMLODIPINE BESYLATE
  4. ZYTIGA [Suspect]
     Active Substance: ABIRATERONE ACETATE
     Indication: PROSTATE CANCER
     Route: 048
     Dates: start: 20161123
  5. MIRTAZAPINE. [Concomitant]
     Active Substance: MIRTAZAPINE
  6. MAGNESIUM-CALCIUM [Concomitant]
  7. LORAZEPAM. [Concomitant]
     Active Substance: LORAZEPAM
  8. HYDORCHLOROQUINE [Concomitant]
  9. OMEPRAZOLE. [Concomitant]
     Active Substance: OMEPRAZOLE
  10. DOCUSATE SODIUM. [Concomitant]
     Active Substance: DOCUSATE SODIUM
  11. ESCITALOPRAN [Concomitant]
  12. LISINOPRIL. [Concomitant]
     Active Substance: LISINOPRIL
  13. ZINC [Concomitant]
     Active Substance: ZINC\ZINC CHLORIDE
  14. LUPRON DEPOT [Concomitant]
     Active Substance: LEUPROLIDE ACETATE
  15. OXYBUTYNIN ER [Concomitant]
     Active Substance: OXYBUTYNIN
  16. JET ALERT MELATONIN [Concomitant]
  17. PREDNISONE. [Concomitant]
     Active Substance: PREDNISONE
  18. OXYCODONE [Concomitant]
     Active Substance: OXYCODONE
  19. FENTANYL. [Concomitant]
     Active Substance: FENTANYL
  20. MODAFINIL. [Concomitant]
     Active Substance: MODAFINIL

REACTIONS (3)
  - Headache [None]
  - Cough [None]
  - Diarrhoea [None]

NARRATIVE: CASE EVENT DATE: 20161207
